FAERS Safety Report 6733693-4 (Version None)
Quarter: 2010Q2

REPORT INFORMATION
  Report Type: 
  Country: None (occurrence: None)
  Receive Date: 20100520
  Receipt Date: 20100512
  Transmission Date: 20101027
  Serious: Yes (Death)
  Sender: FDA-Public Use
  Company Number: GB-BAYER-201020920GPV

PATIENT
  Sex: Male

DRUGS (4)
  1. ASPIRIN [Suspect]
     Indication: DRUG USE FOR UNKNOWN INDICATION
     Dosage: BAYER HEALTHCARE, MORRISTOWN, USA; BAYER LOW DOSE SAFETY COATED 'BABY' ASPIRIN
  2. ASPIRIN [Suspect]
     Indication: DRUG USE FOR UNKNOWN INDICATION
     Dosage: OVAL YELLOW TABLETS NOS (BAYER 325)
  3. ECOTRIN [Concomitant]
     Indication: DRUG USE FOR UNKNOWN INDICATION
  4. PANADOL EXTRA [Concomitant]
     Indication: DRUG USE FOR UNKNOWN INDICATION

REACTIONS (1)
  - DEATH [None]
